FAERS Safety Report 23291328 (Version 2)
Quarter: 2024Q1

REPORT INFORMATION
  Report Type: Spontaneous
  Country: US (occurrence: US)
  Receive Date: 20231213
  Receipt Date: 20240311
  Transmission Date: 20240410
  Serious: Yes (Hospitalization, Other)
  Sender: FDA-Public Use
  Company Number: US-BRISTOL-MYERS SQUIBB COMPANY-2023-174126

PATIENT
  Age: 71 Year
  Sex: Female

DRUGS (1)
  1. BREYANZI [Suspect]
     Active Substance: LISOCABTAGENE MARALEUCEL
     Indication: B-cell lymphoma
     Dates: start: 20210602

REACTIONS (3)
  - Cytokine release syndrome [Recovered/Resolved]
  - Neurotoxicity [Unknown]
  - Therapeutic response unexpected [Unknown]
